FAERS Safety Report 21600770 (Version 1)
Quarter: 2022Q4

REPORT INFORMATION
  Report Type: Spontaneous
  Country: FR (occurrence: FR)
  Receive Date: 20221116
  Receipt Date: 20221116
  Transmission Date: 20230113
  Serious: Yes (Hospitalization, Other)
  Sender: FDA-Public Use
  Company Number: None

PATIENT
  Age: 28 Year
  Sex: Male
  Weight: 64 kg

DRUGS (3)
  1. LOVENOX [Suspect]
     Active Substance: ENOXAPARIN SODIUM
     Indication: Mitral valve disease
     Dosage: 0.6 ML, QD
     Route: 058
     Dates: start: 20220913, end: 20220915
  2. ARGATROBAN MONOHYDRATE [Concomitant]
     Dosage: 1 UG/KG, QMN
     Dates: start: 20220926, end: 20220929
  3. WARFARIN SODIUM [Concomitant]
     Active Substance: WARFARIN SODIUM
     Dosage: UNK
     Dates: start: 20220929

REACTIONS (2)
  - Intracardiac thrombus [Recovering/Resolving]
  - Heparin-induced thrombocytopenia [Recovered/Resolved]

NARRATIVE: CASE EVENT DATE: 20221003
